FAERS Safety Report 4893035-6 (Version None)
Quarter: 2005Q4

REPORT INFORMATION
  Report Type: 
  Country: None (occurrence: None)
  Receive Date: 20051223
  Receipt Date: 20050923
  Transmission Date: 20060501
  Serious: Yes (Life-Threatening, Hospitalization)
  Sender: FDA-Public Use
  Company Number: 218023

PATIENT
  Age: 52 Year
  Sex: Female

DRUGS (4)
  1. AVASTIN [Suspect]
     Indication: COLON CANCER
     Dates: start: 20050622
  2. FLUOROURACIL [Suspect]
     Indication: COLON CANCER
     Dates: start: 20050622
  3. LEUCOVORIN CALCIUM [Suspect]
     Indication: COLON CANCER
     Dates: start: 20050622
  4. OXALIPLATIN (OXALIPLATIN) [Suspect]
     Indication: COLON CANCER
     Dates: start: 20050622

REACTIONS (1)
  - GASTROINTESTINAL NECROSIS [None]
